FAERS Safety Report 6504466-2 (Version None)
Quarter: 2009Q4

REPORT INFORMATION
  Report Type: 
  Country: None (occurrence: None)
  Receive Date: 20091215
  Receipt Date: 20091201
  Transmission Date: 20100525
  Serious: Yes (Death, Hospitalization)
  Sender: FDA-Public Use
  Company Number: 104

PATIENT
  Age: 25 Year
  Sex: Male

DRUGS (2)
  1. FAZACLO ODT [Suspect]
     Indication: SCHIZOAFFECTIVE DISORDER
     Dosage: 400 MG PO DAILY
     Route: 048
     Dates: start: 20061017, end: 20070117
  2. LITHIUM CARBONATE [Concomitant]

REACTIONS (6)
  - AGGRESSION [None]
  - BRAIN DEATH [None]
  - FALL [None]
  - HAEMORRHAGE INTRACRANIAL [None]
  - HEAD INJURY [None]
  - UNRESPONSIVE TO STIMULI [None]
